FAERS Safety Report 7599704-1 (Version None)
Quarter: 2011Q3

REPORT INFORMATION
  Report Type: 
  Country: None (occurrence: None)
  Receive Date: 20110711
  Receipt Date: 20110627
  Transmission Date: 20111222
  Serious: Yes (Disabling, Other)
  Sender: FDA-Public Use
  Company Number: GB-RANBAXY-2011R1-45467

PATIENT
  Age: 70 Year
  Sex: Female

DRUGS (1)
  1. CEFUROXIME [Suspect]
     Indication: PRODUCT USED FOR UNKNOWN INDICATION
     Dosage: 62.5 MG, 1/1 TOTAL
     Route: 031

REACTIONS (5)
  - VISUAL ACUITY REDUCED [None]
  - CYSTOID MACULAR OEDEMA [None]
  - WRONG DRUG ADMINISTERED [None]
  - MACULAR ISCHAEMIA [None]
  - OFF LABEL USE [None]
